FAERS Safety Report 4992211-1 (Version None)
Quarter: 2006Q2

REPORT INFORMATION
  Report Type: 
  Country: None (occurrence: None)
  Receive Date: 20060502
  Receipt Date: 20060420
  Transmission Date: 20061013
  Serious: Yes (Hospitalization)
  Sender: FDA-Public Use
  Company Number: 2006BI005978

PATIENT
  Age: 67 Year
  Sex: Female

DRUGS (1)
  1. AVONEX [Suspect]
     Indication: MULTIPLE SCLEROSIS
     Dosage: 30 UG; QW; IM
     Route: 030
     Dates: start: 20000113

REACTIONS (5)
  - ARTERIAL RUPTURE [None]
  - CATHETER RELATED COMPLICATION [None]
  - IATROGENIC INJURY [None]
  - STAPHYLOCOCCAL INFECTION [None]
  - VASCULAR PSEUDOANEURYSM [None]
